FAERS Safety Report 17659317 (Version 2)
Quarter: 2020Q2

REPORT INFORMATION
  Report Type: Report from Study
  Country: US (occurrence: US)
  Receive Date: 20200413
  Receipt Date: 20200519
  Transmission Date: 20200713
  Serious: Yes (Hospitalization)
  Sender: FDA-Public Use
  Company Number: US-ROCHE-2577928

PATIENT
  Age: 71 Year
  Sex: Male
  Weight: 90.8 kg

DRUGS (14)
  1. PANTOPRAZOLE [Concomitant]
     Active Substance: PANTOPRAZOLE
     Route: 048
  2. BAYER ASPIRIN [Concomitant]
     Active Substance: ASPIRIN
     Route: 048
  3. LISINOPRIL. [Concomitant]
     Active Substance: LISINOPRIL
     Route: 048
  4. SIMVASTATIN. [Concomitant]
     Active Substance: SIMVASTATIN
     Route: 048
  5. FISH OIL OMEGA 3 [Concomitant]
     Active Substance: FISH OIL
     Route: 048
  6. VITAMIN D3 [Concomitant]
     Active Substance: CHOLECALCIFEROL
     Route: 065
  7. METPROLOL [Concomitant]
     Active Substance: METOPROLOL
     Route: 048
  8. CITALOPRAM [Concomitant]
     Active Substance: CITALOPRAM HYDROBROMIDE
     Route: 048
  9. SMZ-TMP [Concomitant]
     Active Substance: SULFAMETHOXAZOLE\TRIMETHOPRIM
     Dosage: 800-160 1 ORALLY DAILY
     Route: 048
  10. OCREVUS [Suspect]
     Active Substance: OCRELIZUMAB
     Indication: RELAPSING MULTIPLE SCLEROSIS
     Dosage: YES
     Route: 065
     Dates: start: 20181002
  11. TOPIRAMATE. [Concomitant]
     Active Substance: TOPIRAMATE
     Route: 048
  12. LEVOFLOXACIN. [Concomitant]
     Active Substance: LEVOFLOXACIN
     Route: 065
  13. TOLTERODINE [Concomitant]
     Active Substance: TOLTERODINE
     Route: 048
  14. DALFAMPRIDINE. [Concomitant]
     Active Substance: DALFAMPRIDINE
     Route: 048

REACTIONS (4)
  - Urinary tract infection [Recovered/Resolved]
  - Off label use [Unknown]
  - Pneumonia [Recovered/Resolved]
  - Intentional product misuse [Unknown]

NARRATIVE: CASE EVENT DATE: 20200222
